FAERS Safety Report 20108372 (Version 1)
Quarter: 2021Q4

REPORT INFORMATION
  Report Type: Spontaneous
  Country: US (occurrence: US)
  Receive Date: 20211124
  Receipt Date: 20211124
  Transmission Date: 20220303
  Serious: No
  Sender: FDA-Public Use
  Company Number: US-PERRIGO-21US008411

PATIENT
  Age: 83 Year
  Sex: Female
  Weight: 72.562 kg

DRUGS (13)
  1. POLYETHYLENE GLYCOL 3350 [Suspect]
     Active Substance: POLYETHYLENE GLYCOL 3350
     Indication: Endoscopy
     Dosage: 17 G, BID
     Route: 048
     Dates: start: 20210614, end: 20210616
  2. POLYETHYLENE GLYCOL 3350 [Suspect]
     Active Substance: POLYETHYLENE GLYCOL 3350
     Dosage: 17 G, SINGLE
     Route: 048
     Dates: start: 20210617, end: 20210617
  3. LOSARTAN [Concomitant]
     Active Substance: LOSARTAN
     Indication: Hypertension
     Dosage: 50 MG, BID
     Route: 065
     Dates: start: 2014
  4. NORVASC [Concomitant]
     Active Substance: AMLODIPINE BESYLATE
     Indication: Hypertension
     Dosage: UNKNOWN, PRN
     Route: 065
     Dates: start: 202104
  5. CARVEDILOL [Concomitant]
     Active Substance: CARVEDILOL
     Indication: Hypertension
     Dosage: 6.5 MG, 1 TO 2 TIMES DAILY, PRN
     Route: 065
     Dates: start: 2013
  6. ASPIRIN [Concomitant]
     Active Substance: ASPIRIN
     Indication: Prophylaxis
     Dosage: 81 MG, QD
     Route: 065
     Dates: start: 2011
  7. TYLENOL EXTRA STRENGTH [Concomitant]
     Active Substance: ACETAMINOPHEN
     Indication: Pain
     Dosage: UNKNOWN, UNKNOWN
     Route: 065
  8. JANTOVEN [Concomitant]
     Active Substance: WARFARIN SODIUM
     Indication: Cerebrovascular accident
     Dosage: 2.5 TO 7.5 MG, PRN
     Route: 065
     Dates: start: 2013, end: 20210615
  9. JANTOVEN [Concomitant]
     Active Substance: WARFARIN SODIUM
     Indication: Atrial fibrillation
  10. JANTOVEN [Concomitant]
     Active Substance: WARFARIN SODIUM
     Indication: Cardiac failure congestive
  11. LASIX                              /00032601/ [Concomitant]
     Indication: Fluid retention
     Dosage: UNKNOWN, PRN
     Route: 065
  12. INSULIN NOS [Concomitant]
     Active Substance: INSULIN NOS
     Indication: Diabetes mellitus
     Dosage: UNKNOWN, UNKNOWN
     Route: 065
  13. NITROGLYCERIN [Concomitant]
     Active Substance: NITROGLYCERIN
     Indication: Angina pectoris
     Dosage: UNKNOWN, PRN
     Route: 065

REACTIONS (8)
  - Dyspepsia [Recovering/Resolving]
  - Nausea [Recovering/Resolving]
  - Abdominal pain upper [Recovered/Resolved]
  - Asthenia [Recovering/Resolving]
  - Micturition frequency decreased [Recovered/Resolved]
  - Abdominal distension [Recovering/Resolving]
  - Eructation [Recovering/Resolving]
  - Off label use [Recovered/Resolved]

NARRATIVE: CASE EVENT DATE: 20210614
